FAERS Safety Report 8789905 (Version 1)
Quarter: 2012Q4

REPORT INFORMATION
  Report Type: 
  Country: US (occurrence: US)
  Receive Date: 20120917
  Receipt Date: 20120917
  Transmission Date: 20130627
  Serious: No
  Sender: FDA-Public Use
  Company Number: US-PFIZER INC-2012227445

PATIENT
  Age: 2 Year
  Sex: Male
  Weight: 15.87 kg

DRUGS (1)
  1. CHILDRENS ADVIL [Suspect]
     Indication: PYREXIA
     Dosage: one teaspoon every four to six hours, as needed
     Route: 048
     Dates: start: 20120911

REACTIONS (3)
  - Accidental exposure to product by child [Unknown]
  - Abdominal pain upper [Recovered/Resolved]
  - Product container seal issue [Unknown]
